FAERS Safety Report 24739321 (Version 1)
Quarter: 2024Q4

REPORT INFORMATION
  Report Type: Spontaneous
  Country: FR (occurrence: FR)
  Receive Date: 20241216
  Receipt Date: 20241216
  Transmission Date: 20250115
  Serious: Yes (Hospitalization)
  Sender: DAIICHI
  Company Number: None

PATIENT
  Age: 46 Year
  Sex: Female
  Weight: 44 kg

DRUGS (5)
  1. ENHERTU [Suspect]
     Active Substance: FAM-TRASTUZUMAB DERUXTECAN-NXKI
     Indication: Breast cancer
     Dosage: 200 MG, QD (C2)
     Route: 042
     Dates: start: 20231222, end: 20231222
  2. PREDNISOLONE [Suspect]
     Active Substance: PREDNISOLONE
     Indication: Premedication
     Dosage: 80 MG, QD (C2)
     Route: 048
     Dates: start: 20231222, end: 20231222
  3. APREPITANT [Suspect]
     Active Substance: APREPITANT
     Indication: Premedication
     Dosage: 125 MG, QD (C2)
     Route: 048
     Dates: start: 20231222, end: 20231222
  4. ONDANSETRON [Suspect]
     Active Substance: ONDANSETRON
     Indication: Premedication
     Dosage: 8 MG, QD (C2)
     Route: 048
     Dates: start: 20231222, end: 20231222
  5. CETIRIZINE HYDROCHLORIDE [Suspect]
     Active Substance: CETIRIZINE HYDROCHLORIDE
     Indication: Premedication
     Dosage: 10 MG, QD (C2)
     Route: 048
     Dates: start: 20231222, end: 20231222

REACTIONS (1)
  - Dermatitis bullous [Recovered/Resolved]

NARRATIVE: CASE EVENT DATE: 20240107
